FAERS Safety Report 9110202 (Version 1)
Quarter: 2013Q1

REPORT INFORMATION
  Report Type: Spontaneous
  Country: AU (occurrence: AU)
  Receive Date: 20130222
  Receipt Date: 20130222
  Transmission Date: 20140127
  Serious: Yes (Disabling)
  Sender: FDA-Public Use
  Company Number: AU-TEVA-386884ISR

PATIENT
  Age: 78 Year
  Sex: Female
  Weight: 60 kg

DRUGS (5)
  1. AZILECT [Suspect]
  2. AVANZA [Suspect]
  3. SIFROL [Suspect]
  4. SINEMET [Suspect]
  5. TEMAZEPAM [Suspect]

REACTIONS (3)
  - Nocturia [Unknown]
  - Chromaturia [Unknown]
  - Micturition urgency [Unknown]
